FAERS Safety Report 6926402-7 (Version None)
Quarter: 2010Q3

REPORT INFORMATION
  Report Type: 
  Country: None (occurrence: None)
  Receive Date: 20100816
  Receipt Date: 20100816
  Transmission Date: 20110219
  Serious: No
  Sender: FDA-Public Use
  Company Number: None

PATIENT
  Sex: Male
  Weight: 38.5 kg

DRUGS (6)
  1. PREDNISONE [Suspect]
     Dosage: 2200 MG
     Dates: end: 20090629
  2. VINCRISTINE SULFATE [Suspect]
     Dosage: 7.6 MG
     Dates: end: 20090623
  3. CYTARABINE [Suspect]
     Dosage: 70 MG
     Dates: end: 20090601
  4. DAUNORUBICIN HCL [Suspect]
     Dosage: 1200 MG
     Dates: end: 20090623
  5. METHOTREXATE [Suspect]
     Dosage: 30 MG
     Dates: end: 20090630
  6. PEG-L-ASPARAGINASE (PEGASPARGASE, ONCOSPAR) [Suspect]
     Dosage: 3175 IU
     Dates: end: 20090605

REACTIONS (1)
  - BLOOD GLUCOSE FLUCTUATION [None]
